FAERS Safety Report 10989316 (Version 1)
Quarter: 2015Q2

REPORT INFORMATION
  Report Type: Spontaneous
  Country: IN (occurrence: IN)
  Receive Date: 20150406
  Receipt Date: 20150406
  Transmission Date: 20150821
  Serious: Yes (Death, Other)
  Sender: FDA-Public Use
  Company Number: IN-ROCHE-1559927

PATIENT
  Age: 53 Year
  Sex: Female
  Weight: 75 kg

DRUGS (3)
  1. AVASTIN [Suspect]
     Active Substance: BEVACIZUMAB
     Indication: PRODUCT USED FOR UNKNOWN INDICATION
     Dosage: STOP DATE - UNKNOWN
     Route: 065
     Dates: start: 20150314
  2. LEVIPIL [Suspect]
     Active Substance: LEVETIRACETAM
     Indication: BRAIN NEOPLASM
     Route: 048
     Dates: end: 20150314
  3. DEXAMETHASONE (ORAL) [Suspect]
     Active Substance: DEXAMETHASONE
     Indication: BRAIN NEOPLASM
     Route: 048
     Dates: end: 20150314

REACTIONS (2)
  - Diarrhoea [Not Recovered/Not Resolved]
  - Dyspnoea [Fatal]

NARRATIVE: CASE EVENT DATE: 20150314
